FAERS Safety Report 13642790 (Version 3)
Quarter: 2017Q3

REPORT INFORMATION
  Report Type: Report from Study
  Country: CA (occurrence: CA)
  Receive Date: 20170612
  Receipt Date: 20170731
  Transmission Date: 20171127
  Serious: Yes (Death, Hospitalization, Other)
  Sender: FDA-Public Use
  Company Number: CA-BEH-2017081187

PATIENT
  Age: 84 Year
  Sex: Male

DRUGS (2)
  1. HORMONES [Concomitant]
     Active Substance: UNSPECIFIED INGREDIENT
     Indication: PROSTATE CANCER
     Dosage: UNK UNK, Q3MT
     Route: 065
     Dates: end: 201704
  2. HIZENTRA [Suspect]
     Active Substance: HUMAN IMMUNOGLOBULIN G
     Indication: SECONDARY IMMUNODEFICIENCY
     Dosage: 13 G, QW
     Route: 058
     Dates: start: 20160928

REACTIONS (18)
  - Vomiting [Unknown]
  - Dehydration [Unknown]
  - Dyspnoea [Unknown]
  - Intensive care [Unknown]
  - Fatigue [Unknown]
  - Dysuria [Unknown]
  - Haemoglobin decreased [Unknown]
  - Dehydration [Unknown]
  - Prostatic specific antigen increased [Unknown]
  - Nausea [Unknown]
  - Death [Fatal]
  - Osteonecrosis [Unknown]
  - Abdominal pain [Unknown]
  - Decreased appetite [Unknown]
  - Pleural effusion [Unknown]
  - Dyspnoea [Unknown]
  - Cardiac failure congestive [Unknown]
  - Asthenia [Unknown]

NARRATIVE: CASE EVENT DATE: 2017
